FAERS Safety Report 4698287-3 (Version None)
Quarter: 2005Q2

REPORT INFORMATION
  Report Type: 
  Country: None (occurrence: None)
  Receive Date: 20050621
  Receipt Date: 20050608
  Transmission Date: 20051028
  Serious: Yes (Hospitalization)
  Sender: FDA-Public Use
  Company Number: WAES 0502USA00195

PATIENT
  Age: 56 Year
  Sex: Female

DRUGS (2)
  1. COZAAR [Suspect]
     Indication: HYPERTENSION
     Dosage: 25 MG/DAILY PO
     Route: 048
     Dates: start: 20001127, end: 20021007
  2. NORVASC [Concomitant]

REACTIONS (1)
  - GLOMERULONEPHRITIS PROLIFERATIVE [None]
